FAERS Safety Report 5507792-9 (Version None)
Quarter: 2007Q4

REPORT INFORMATION
  Report Type: 
  Country: None (occurrence: None)
  Receive Date: 20071106
  Receipt Date: 20071026
  Transmission Date: 20080405
  Serious: Yes (Hospitalization)
  Sender: FDA-Public Use
  Company Number: US-MERCK-0605USA02594

PATIENT
  Age: 45 Year
  Sex: Male
  Weight: 145 kg

DRUGS (11)
  1. ZOCOR [Suspect]
     Indication: HYPERLIPIDAEMIA
     Route: 048
     Dates: start: 20060201, end: 20060501
  2. PRINIVIL [Concomitant]
     Route: 048
  3. HYDRODIURIL [Concomitant]
     Route: 048
  4. ARMOUR THYROID TABLETS [Suspect]
     Indication: WEIGHT DECREASED
     Route: 065
  5. ZANTAC [Concomitant]
     Indication: GASTROINTESTINAL DISORDER
     Route: 048
  6. AMBIEN CR [Concomitant]
     Route: 065
  7. VITAMIN E [Concomitant]
     Route: 065
  8. VITAMINS (UNSPECIFIED) [Concomitant]
     Route: 065
  9. FOLIC ACID [Concomitant]
     Route: 065
  10. ASPIRIN [Concomitant]
     Route: 065
  11. HYDROCHLOROTHIAZIDE AND LISINOPRIL [Concomitant]
     Route: 065

REACTIONS (9)
  - BLOOD CREATINE PHOSPHOKINASE INCREASED [None]
  - CARPAL TUNNEL SYNDROME [None]
  - CHEST PAIN [None]
  - GASTROINTESTINAL DISORDER [None]
  - HYPERTHYROIDISM [None]
  - MUSCLE INJURY [None]
  - MYALGIA [None]
  - MYOSITIS [None]
  - WEIGHT INCREASED [None]
